FAERS Safety Report 9103942 (Version 4)
Quarter: 2015Q1

REPORT INFORMATION
  Report Type: Spontaneous
  Country: US (occurrence: US)
  Receive Date: 20130219
  Receipt Date: 20150304
  Transmission Date: 20150721
  Serious: No
  Sender: FDA-Public Use
  Company Number: US-PFIZER INC-2013060217

PATIENT
  Age: 69 Year
  Sex: Female

DRUGS (47)
  1. NORVASC [Suspect]
     Active Substance: AMLODIPINE BESYLATE
     Dosage: 5 MG, 1X/DAY (ONCE A HS /ONCE AT NIGHT )
  2. PREMPRO [Suspect]
     Active Substance: ESTROGENS, CONJUGATED\MEDROXYPROGESTERONE ACETATE
     Dosage: UNK, 4X/DAY
  3. EFFEXOR [Suspect]
     Active Substance: VENLAFAXINE HYDROCHLORIDE
     Indication: PAIN
     Dosage: 150 MG, 2X/DAY
  4. DIOVAN [Suspect]
     Active Substance: VALSARTAN
     Dosage: 4X/DAY
  5. VITAMIN C [Concomitant]
     Active Substance: ASCORBIC ACID
     Dosage: 1000 MG, 1X/DAY
     Route: 048
  6. PATANOL [Concomitant]
     Active Substance: OLOPATADINE HYDROCHLORIDE
     Dosage: 0.1 %, 1 GTTS OU QID PRN
     Route: 047
  7. NYSTATIN DOME [Concomitant]
     Dosage: 200 G, UNK
  8. ADVAIR DISKUS [Concomitant]
     Active Substance: FLUTICASONE PROPIONATE\SALMETEROL XINAFOATE
     Dosage: 2X/DAY, 100-50 MCG,1 PUFF TWICE A DAY
  9. PROCHLORPERAZINE MALEATE. [Concomitant]
     Active Substance: PROCHLORPERAZINE MALEATE
     Indication: NAUSEA
     Dosage: 5 MG,  ONE TO TWO TABLETS BY MOUTH EVERY 6 HOURS IN THE MORNING AS NEEDED FOR NAUSEA
     Route: 048
  10. ZYRTEC [Concomitant]
     Active Substance: CETIRIZINE HYDROCHLORIDE
     Dosage: 10 MG, DAILY
     Route: 048
  11. NORVASC [Suspect]
     Active Substance: AMLODIPINE BESYLATE
     Dosage: UNK, 4X/DAY
  12. AMLODIPINE BESILATE [Concomitant]
     Active Substance: AMLODIPINE BESYLATE
     Dosage: 5 MG, DAILY
     Route: 048
  13. NITROGLYCERIN. [Concomitant]
     Active Substance: NITROGLYCERIN
     Indication: CHEST PAIN
     Dosage: 0.4 MG, UNK, 1 TAB S1 Q5 MIN PRN CHEST PAIN
  14. TRIAMCINOLONE ACETONIDE. [Concomitant]
     Active Substance: TRIAMCINOLONE ACETONIDE
     Dosage: 0.1 %, 2X/DAY, APPLY THIN LAYER TO AFFECTED AREA 2 TIMES A DAY PRN, 60 GM
  15. PROPRANOLOL HYDROCHLORIDE. [Concomitant]
     Active Substance: PROPRANOLOL HYDROCHLORIDE
     Dosage: 80 MG, 2X/DAY
     Route: 048
  16. CELEBREX [Suspect]
     Active Substance: CELECOXIB
     Dosage: 200 MG, 1X/DAY
     Route: 048
  17. GABAPENTIN. [Suspect]
     Active Substance: GABAPENTIN
     Dosage: 800 MG, 3X/DAY
     Route: 048
  18. MORPHINE SULFATE. [Suspect]
     Active Substance: MORPHINE SULFATE
     Dosage: 30 MG, UNK, ^5 IMESZ^
     Route: 048
  19. PREDNISONE. [Suspect]
     Active Substance: PREDNISONE
     Dosage: 10MG,  1X/DAY
     Route: 048
  20. OXYCONTIN [Suspect]
     Active Substance: OXYCODONE HYDROCHLORIDE
     Dosage: 80 MG,AT 5 AM/7 AM/2 PM /7 PM/MIDNIGHT
     Route: 048
  21. LOTRISONE [Concomitant]
     Active Substance: BETAMETHASONE DIPROPIONATE\CLOTRIMAZOLE
     Indication: PRURITUS
     Dosage: UNK, 2X/DAY, 1-0.05 %
  22. COLACE [Concomitant]
     Active Substance: DOCUSATE SODIUM
     Dosage: 200 MG, 1X/DAY
  23. ANUSOL-HC [Concomitant]
     Indication: HAEMORRHOIDS
     Dosage: 2.5 %, 3X/DAY
     Route: 061
  24. SENNATAB [Concomitant]
     Dosage: 8.6 MG, 4X/DAY
     Route: 048
  25. EFFEXOR [Suspect]
     Active Substance: VENLAFAXINE HYDROCHLORIDE
     Dosage: 4X/DAY
  26. EFFEXOR XR [Suspect]
     Active Substance: VENLAFAXINE HYDROCHLORIDE
     Dosage: 4X/DAY
  27. EFFEXOR XR [Suspect]
     Active Substance: VENLAFAXINE HYDROCHLORIDE
     Dosage: 300 MG, 1X/DAY
  28. CLINDAMYCIN [Concomitant]
     Active Substance: CLINDAMYCIN\CLINDAMYCIN PHOSPHATE
     Dosage: 300 MG, 3X/DAY
     Route: 048
  29. VALSARTAN AND HYDROCHLOROTHIAZIDE [Concomitant]
     Active Substance: HYDROCHLOROTHIAZIDE\VALSARTAN
     Dosage: UNK, 320-12.5 M, 1 PO QAM AND ? PO QHS
     Route: 048
  30. CELEBREX [Suspect]
     Active Substance: CELECOXIB
     Indication: PAIN
     Dosage: 200 MG, 2X/DAY
     Route: 048
  31. GABAPENTIN. [Suspect]
     Active Substance: GABAPENTIN
     Indication: PAIN
     Dosage: 600 MG, 4X/DAY
     Route: 048
  32. DIOVAN [Suspect]
     Active Substance: VALSARTAN
     Indication: PAIN
     Dosage: 1X/DAY
  33. ASPIRIN. [Suspect]
     Active Substance: ASPIRIN
     Dosage: 81 MG,  1 PO QHS
     Route: 048
  34. CALCIUM CARBONATE. [Concomitant]
     Active Substance: CALCIUM CARBONATE
  35. DOXAZOSIN MESILATE [Concomitant]
     Active Substance: DOXAZOSIN MESYLATE
     Dosage: 8 MG,  ? PO QNOON AND 1 PO QPM
     Route: 048
  36. MIRALAX [Concomitant]
     Active Substance: POLYETHYLENE GLYCOL 3350
     Dosage: UNK, 1X/DAY, 3350 NF
     Route: 048
  37. RHINOCORT AQUA [Concomitant]
     Active Substance: BUDESONIDE
     Dosage: 32 ?G/ACT, 1X/DAY, TO SPRAY BOTH NOSTRILS QD
     Route: 045
  38. CELEBREX [Suspect]
     Active Substance: CELECOXIB
     Dosage: UNK, 4X/DAY
     Route: 048
  39. EFFEXOR XR [Suspect]
     Active Substance: VENLAFAXINE HYDROCHLORIDE
     Indication: PAIN
     Dosage: 150 MG, 2X/DAY
  40. GABAPENTIN. [Suspect]
     Active Substance: GABAPENTIN
     Dosage: UNK, 4X/DAY
     Route: 048
  41. LORAZEPAM. [Suspect]
     Active Substance: LORAZEPAM
     Indication: PAIN
     Dosage: UNK, 4X/DAY
  42. VOLTAREN [Suspect]
     Active Substance: DICLOFENAC SODIUM
     Indication: PAIN
     Dosage: 1 % 4 GM TO PAINFUL AREAS UP TO 4 TIMES PER DAY
  43. MELATONIN [Concomitant]
     Active Substance: MELATONIN
     Dosage: 3 MG, UNK, 1 PO, HS
     Route: 048
  44. PREMPRO [Suspect]
     Active Substance: ESTROGENS, CONJUGATED\MEDROXYPROGESTERONE ACETATE
     Indication: PAIN
     Dosage: 0.3-1.5 MG ONCE DAILY
     Route: 048
  45. DESYREL [Concomitant]
     Active Substance: TRAZODONE HYDROCHLORIDE
     Dosage: 100 MG, UNK, 1 TABLET AT BED TIME
  46. AMBIEN [Concomitant]
     Active Substance: ZOLPIDEM TARTRATE
     Dosage: 20 MG, 2 BY MOUTH EVERY NIGHT AT BED TIME
     Route: 048
  47. SIMVASTATIN. [Concomitant]
     Active Substance: SIMVASTATIN
     Dosage: 40 MG, DAILY
     Route: 048

REACTIONS (2)
  - Intentional product use issue [Unknown]
  - Drug ineffective [Unknown]
